FAERS Safety Report 18101413 (Version 1)
Quarter: 2020Q3

REPORT INFORMATION
  Report Type: Report from Study
  Country: CA (occurrence: CA)
  Receive Date: 20200801
  Receipt Date: 20200801
  Transmission Date: 20201103
  Serious: Yes (Other)
  Sender: FDA-Public Use
  Company Number: NVSC2020CA212627

PATIENT
  Sex: Female

DRUGS (1)
  1. DEFEROXAMINE MESILATE [Suspect]
     Active Substance: DEFEROXAMINE MESYLATE
     Indication: IRON OVERLOAD
     Dosage: UNK
     Route: 042

REACTIONS (4)
  - Myelodysplastic syndrome [Unknown]
  - Neutrophil count decreased [Unknown]
  - Hypersensitivity [Unknown]
  - Sepsis [Unknown]
